FAERS Safety Report 4635640-8 (Version None)
Quarter: 2005Q2

REPORT INFORMATION
  Report Type: 
  Country: None (occurrence: None)
  Receive Date: 20050414
  Receipt Date: 20050329
  Transmission Date: 20051028
  Serious: Yes (Life-Threatening, Hospitalization)
  Sender: FDA-Public Use
  Company Number: 10674

PATIENT
  Age: 82 Year
  Sex: Male

DRUGS (5)
  1. METHOTREXATE [Suspect]
     Indication: RHEUMATOID ARTHRITIS
     Dosage: 12.5 MG WEEKLY PO
     Route: 048
     Dates: start: 20021201, end: 20030217
  2. SULFASALAZINE [Suspect]
     Dosage: 1 G BID PO
     Route: 048
     Dates: start: 20020301
  3. DOXAZOSIN [Concomitant]
  4. PREDNISOLONE [Concomitant]
  5. ASPIRIN [Concomitant]

REACTIONS (5)
  - CONTUSION [None]
  - ORAL MUCOSAL BLISTERING [None]
  - RECTAL HAEMORRHAGE [None]
  - THROMBOCYTOPENIA [None]
  - VASCULITIC RASH [None]
